FAERS Safety Report 25627400 (Version 1)
Quarter: 2025Q3

REPORT INFORMATION
  Report Type: Spontaneous
  Country: CA (occurrence: CA)
  Receive Date: 20250731
  Receipt Date: 20250731
  Transmission Date: 20251020
  Serious: Yes (Other)
  Sender: PFIZER
  Company Number: CA-PFIZER INC-202500153058

PATIENT

DRUGS (12)
  1. VINCRISTINE SULFATE [Suspect]
     Active Substance: VINCRISTINE SULFATE
     Route: 065
  2. RITUXIMAB [Suspect]
     Active Substance: RITUXIMAB
     Indication: Immune thrombocytopenia
     Route: 042
  3. AZATHIOPRINE [Suspect]
     Active Substance: AZATHIOPRINE
     Route: 065
  4. CYCLOSPORINE [Suspect]
     Active Substance: CYCLOSPORINE
     Route: 065
  5. DANAZOL [Suspect]
     Active Substance: DANAZOL
     Route: 065
  6. DEXAMETHASONE [Suspect]
     Active Substance: DEXAMETHASONE
     Route: 065
  7. HUMAN IMMUNOGLOBULIN G [Suspect]
     Active Substance: HUMAN IMMUNOGLOBULIN G
     Route: 042
  8. NPLATE [Suspect]
     Active Substance: ROMIPLOSTIM
     Route: 058
  9. PREDNISONE [Suspect]
     Active Substance: PREDNISONE
     Route: 065
  10. VITAMIN C [Suspect]
     Active Substance: ASCORBIC ACID
     Route: 065
  11. RABEPRAZOLE SODIUM [Concomitant]
     Active Substance: RABEPRAZOLE SODIUM
  12. ELAVIL [Concomitant]
     Active Substance: AMITRIPTYLINE HYDROCHLORIDE

REACTIONS (12)
  - Coombs positive haemolytic anaemia [Not Recovered/Not Resolved]
  - Haemolysis [Not Recovered/Not Resolved]
  - Hepatic enzyme increased [Not Recovered/Not Resolved]
  - Infusion related reaction [Not Recovered/Not Resolved]
  - Lymphadenitis [Not Recovered/Not Resolved]
  - Migraine [Not Recovered/Not Resolved]
  - Nausea [Not Recovered/Not Resolved]
  - Neutropenia [Not Recovered/Not Resolved]
  - Constipation [Not Recovered/Not Resolved]
  - Therapeutic product effect decreased [Not Recovered/Not Resolved]
  - Drug ineffective [Not Recovered/Not Resolved]
  - Off label use [Unknown]
